FAERS Safety Report 19096167 (Version 2)
Quarter: 2023Q1

REPORT INFORMATION
  Report Type: Report from Study
  Country: NL (occurrence: NL)
  Receive Date: 20210406
  Receipt Date: 20230127
  Transmission Date: 20230418
  Serious: Yes (Death, Disabling, Other)
  Sender: FDA-Public Use
  Company Number: NL-EMA-DD-20180213-SHREYAEVHP-104346

PATIENT
  Age: 83 Year
  Sex: Female

DRUGS (2)
  1. MELPHALAN [Suspect]
     Active Substance: MELPHALAN
     Indication: Neuroendocrine carcinoma of the skin
     Dosage: UNK
     Route: 042
  2. HEPARIN SODIUM [Concomitant]
     Active Substance: HEPARIN SODIUM
     Indication: Surgical preconditioning
     Dosage: UNK
     Route: 065

REACTIONS (5)
  - Rhabdomyolysis [Fatal]
  - Metabolic acidosis [Fatal]
  - Renal failure [Fatal]
  - Peripheral ischaemia [Unknown]
  - Toxicity to various agents [Unknown]
